FAERS Safety Report 17989922 (Version 1)
Quarter: 2020Q3

REPORT INFORMATION
  Report Type: Spontaneous
  Country: AT (occurrence: AT)
  Receive Date: 20200707
  Receipt Date: 20200707
  Transmission Date: 20201103
  Serious: Yes (Other)
  Sender: FDA-Public Use
  Company Number: AT-AMGEN-AUTSP2020105062

PATIENT
  Age: 72 Year
  Sex: Female

DRUGS (5)
  1. FEMARA [Suspect]
     Active Substance: LETROZOLE
     Indication: BREAST CANCER METASTATIC
     Dosage: UNK
     Route: 065
     Dates: start: 200512, end: 200604
  2. FEMARA [Suspect]
     Active Substance: LETROZOLE
     Dosage: UNK
     Route: 065
     Dates: start: 201908, end: 202001
  3. BEVACIZUMAB. [Suspect]
     Active Substance: BEVACIZUMAB
     Indication: BREAST CANCER METASTATIC
     Dosage: UNK
     Route: 065
     Dates: end: 202006
  4. PACLITAXEL. [Suspect]
     Active Substance: PACLITAXEL
     Indication: BREAST CANCER METASTATIC
     Dosage: UNK
     Route: 065
     Dates: start: 202006
  5. RIBOCICLIB. [Suspect]
     Active Substance: RIBOCICLIB
     Indication: BREAST CANCER METASTATIC
     Dosage: UNK
     Route: 065
     Dates: start: 201908, end: 201908

REACTIONS (2)
  - Malignant neoplasm progression [Unknown]
  - Breast cancer metastatic [Unknown]

NARRATIVE: CASE EVENT DATE: 201908
